FAERS Safety Report 19980028 (Version 4)
Quarter: 2022Q1

REPORT INFORMATION
  Report Type: Other
  Country: SI (occurrence: SI)
  Receive Date: 20211021
  Receipt Date: 20220325
  Transmission Date: 20220423
  Serious: Yes (Death, Life-Threatening, Hospitalization, Disabling)
  Sender: FDA-Public Use
  Company Number: None

PATIENT
  Age: 39 Year
  Sex: Female

DRUGS (4)
  1. OCREVUS [Suspect]
     Active Substance: OCRELIZUMAB
     Indication: Multiple sclerosis
     Dosage: WITHIN 6 MONTHS, THE PATIENT RECEIVED 3 DOSES OF THE DRUG.
     Route: 042
     Dates: start: 201911, end: 202102
  2. COMIRNATY [Suspect]
     Active Substance: TOZINAMERAN
     Indication: COVID-19 immunisation
     Dosage: DOSE NUMBER: 1
     Route: 030
     Dates: start: 20210610, end: 20210610
  3. VENLAFAXINE HYDROCHLORIDE [Concomitant]
     Active Substance: VENLAFAXINE HYDROCHLORIDE
     Indication: Depression
     Dosage: IN THE MORNING
     Route: 048
  4. LAMOTRIGINE [Concomitant]
     Active Substance: LAMOTRIGINE
     Indication: Depression
     Route: 048

REACTIONS (3)
  - Pneumonia aspiration [Fatal]
  - Encephalitis [Recovering/Resolving]
  - Infection [Unknown]

NARRATIVE: CASE EVENT DATE: 20210701
